FAERS Safety Report 9659940 (Version 1)
Quarter: 2013Q4

REPORT INFORMATION
  Report Type: Spontaneous
  Country: US (occurrence: US)
  Receive Date: 20131031
  Receipt Date: 20131031
  Transmission Date: 20140711
  Serious: No
  Sender: FDA-Public Use
  Company Number: US-PFIZER INC-2013310975

PATIENT
  Age: 62 Year
  Sex: Male
  Weight: 92.97 kg

DRUGS (2)
  1. SUTENT [Suspect]
     Indication: RENAL CELL CARCINOMA
     Dosage: 50 MG, 1X/DAY
     Route: 048
     Dates: start: 20130930
  2. VOTRIENT [Concomitant]
     Dosage: UNK
     Dates: start: 201211

REACTIONS (1)
  - Rash [Not Recovered/Not Resolved]
